FAERS Safety Report 4930689-X (Version None)
Quarter: 2006Q1

REPORT INFORMATION
  Report Type: 
  Country: None (occurrence: None)
  Receive Date: 20060227
  Receipt Date: 20060213
  Transmission Date: 20060701
  Serious: Yes (Other)
  Sender: FDA-Public Use
  Company Number: 2006025148

PATIENT
  Age: 54 Year
  Sex: Female
  Weight: 77.1115 kg

DRUGS (6)
  1. CELEBREX [Suspect]
     Indication: ARTHRITIS
     Dates: start: 20030101, end: 20030101
  2. BEXTRA [Suspect]
     Indication: ARTHRITIS
     Dates: start: 20030101, end: 20030101
  3. SOMA [Concomitant]
  4. ALL OTHER THERAPEUTIC PRODUCTS (ALL OTHER THERAPEUTIC PRODUCTS) [Concomitant]
  5. GLUCOSAMINE (GLUCOSAMINE) [Concomitant]
  6. CHONDROITIN (CHONDROITIN SULFATE) [Concomitant]

REACTIONS (7)
  - DRUG INEFFECTIVE [None]
  - ERYTHEMA [None]
  - FALL [None]
  - FOOT FRACTURE [None]
  - GASTRIC DISORDER [None]
  - HEAD INJURY [None]
  - JOINT SWELLING [None]
